FAERS Safety Report 7962844-9 (Version None)
Quarter: 2011Q4

REPORT INFORMATION
  Report Type: 
  Country: None (occurrence: None)
  Receive Date: 20111207
  Receipt Date: 20111122
  Transmission Date: 20120403
  Serious: Yes (Other)
  Sender: FDA-Public Use
  Company Number: US-ELI_LILLY_AND_COMPANY-US201111007255

PATIENT
  Sex: Male

DRUGS (1)
  1. HUMALOG MIX 50/50 [Suspect]
     Indication: TYPE 2 DIABETES MELLITUS
     Dosage: 60 U, TID
     Dates: start: 20100101

REACTIONS (3)
  - VISUAL IMPAIRMENT [None]
  - BLINDNESS UNILATERAL [None]
  - INCORRECT DOSE ADMINISTERED [None]
